FAERS Safety Report 5518666-1 (Version None)
Quarter: 2007Q4

REPORT INFORMATION
  Report Type: 
  Country: None (occurrence: None)
  Receive Date: 20071115
  Receipt Date: 20071107
  Transmission Date: 20080405
  Serious: Yes (Other)
  Sender: FDA-Public Use
  Company Number: US-ASTRAZENECA-2007UW20781

PATIENT
  Age: 17320 Day
  Sex: Female
  Weight: 87.3 kg

DRUGS (4)
  1. SEROQUEL [Suspect]
     Indication: SLEEP TERROR
     Route: 048
     Dates: start: 20040201
  2. RISPERDAL [Concomitant]
     Dates: start: 20031001, end: 20040201
  3. DEXATRIM [Concomitant]
     Dates: start: 20050101, end: 20050101
  4. HALDOL [Concomitant]

REACTIONS (7)
  - BLOOD CHOLESTEROL INCREASED [None]
  - BLOOD TRIGLYCERIDES INCREASED [None]
  - DIABETES MELLITUS [None]
  - DIABETIC NEUROPATHY [None]
  - OBESITY [None]
  - VISION BLURRED [None]
  - WEIGHT INCREASED [None]
